FAERS Safety Report 20307276 (Version 3)
Quarter: 2025Q4

REPORT INFORMATION
  Report Type: Spontaneous
  Country: EU (occurrence: EU)
  Receive Date: 20220107
  Receipt Date: 20251003
  Transmission Date: 20260118
  Serious: Yes (Hospitalization, Other)
  Sender: AUROBINDO
  Company Number: EU-002147023-NVSC2021CZ297088

PATIENT
  Age: 57 Year
  Sex: Male
  Weight: 104.6 kg

DRUGS (14)
  1. GLIMEPIRIDE [Suspect]
     Active Substance: GLIMEPIRIDE
     Indication: Type 2 diabetes mellitus
     Dosage: UNK
     Route: 048
  2. GLIMEPIRIDE [Suspect]
     Active Substance: GLIMEPIRIDE
     Dosage: UNK (IN GRADUALLY INCREASING DOSES)
     Route: 048
  3. GLIMEPIRIDE [Suspect]
     Active Substance: GLIMEPIRIDE
     Dosage: UNK
     Route: 048
     Dates: start: 2011
  4. METFORMIN [Suspect]
     Active Substance: METFORMIN HYDROCHLORIDE
     Indication: Type 2 diabetes mellitus
     Dosage: 3000 MILLIGRAM, ONCE A DAY
     Route: 048
  5. METFORMIN [Suspect]
     Active Substance: METFORMIN HYDROCHLORIDE
     Dosage: UNK (IN GRADUALLY INCREASING DOSES)
     Route: 048
  6. METFORMIN [Suspect]
     Active Substance: METFORMIN HYDROCHLORIDE
     Dosage: 3000 MILLIGRAM, ONCE A DAY
     Route: 048
     Dates: start: 2011
  7. METFORMIN [Suspect]
     Active Substance: METFORMIN HYDROCHLORIDE
     Dosage: 1000 MILLIGRAM, 3 TIMES A DAY
     Route: 048
  8. METFORMIN [Suspect]
     Active Substance: METFORMIN HYDROCHLORIDE
     Dosage: UNK (MAINTAINING THE ESTABLISHED DOSE OF METFORMIN FOR THE FOLLOWING FOUR-WEEK PERIOD )
     Route: 048
     Dates: start: 2009
  9. METFORMIN [Suspect]
     Active Substance: METFORMIN HYDROCHLORIDE
     Dosage: 3000 MILLIGRAM, ONCE A DAY
     Route: 048
     Dates: start: 2019
  10. LANTUS [Concomitant]
     Active Substance: INSULIN GLARGINE
     Indication: Type 2 diabetes mellitus
     Dosage: UNK, ONCE A DAY (18 UNITS AT 21 HOURS )
     Route: 065
     Dates: start: 2009
  11. LANTUS [Concomitant]
     Active Substance: INSULIN GLARGINE
     Dosage: UNK, ONCE A DAY (20 UNITS AT 21 HOURS )
     Route: 058
     Dates: start: 2019
  12. LANTUS [Concomitant]
     Active Substance: INSULIN GLARGINE
     Dosage: UNK (18 UNITS AT 21 HOURS)
     Route: 065
     Dates: start: 2019
  13. APIDRA SOLOSTAR [Concomitant]
     Active Substance: INSULIN GLULISINE
     Indication: Type 2 diabetes mellitus
     Dosage: UNK UNK, 3 TIMES A DAY (12-12-10 UNITS)
     Route: 058
     Dates: start: 2019
  14. APIDRA SOLOSTAR [Concomitant]
     Active Substance: INSULIN GLULISINE
     Dosage: UNK (12-12-10 UNITS)
     Route: 058
     Dates: start: 2019

REACTIONS (4)
  - Diabetes mellitus inadequate control [Recovering/Resolving]
  - Urinary tract infection [Unknown]
  - Treatment failure [Unknown]
  - Drug ineffective [Unknown]

NARRATIVE: CASE EVENT DATE: 20190101
